FAERS Safety Report 10079909 (Version 1)
Quarter: 2014Q2

REPORT INFORMATION
  Report Type: Spontaneous
  Country: IT (occurrence: IT)
  Receive Date: 20140415
  Receipt Date: 20140415
  Transmission Date: 20141212
  Serious: Yes (Death)
  Sender: FDA-Public Use
  Company Number: IT-ACTAVIS-2013-25360

PATIENT
  Age: 71 Year
  Sex: Male

DRUGS (5)
  1. PACLITAXEL ACTAVIS [Suspect]
     Indication: LUNG NEOPLASM MALIGNANT
     Dosage: 200 MG/M2, CYCLICAL
     Route: 042
     Dates: start: 20130509, end: 20130509
  2. AVASTIN ROCHE [Suspect]
     Indication: LUNG NEOPLASM MALIGNANT
     Dosage: 150 MG/KG, CYCLICAL
     Route: 042
     Dates: start: 20130509, end: 20130509
  3. CARBOPLATINO TEVA [Suspect]
     Indication: LUNG NEOPLASM MALIGNANT
     Dosage: 400 MG/M2, CYCLICAL
     Route: 042
     Dates: start: 20130509, end: 20130509
  4. LYRICA [Concomitant]
     Indication: PRODUCT USED FOR UNKNOWN INDICATION
     Dosage: 225 MG, UNKNOWN
     Route: 048
  5. TACHIPIRINA [Concomitant]
     Indication: HYPERPYREXIA
     Dosage: 3000 MG, UNKNOWN
     Route: 048

REACTIONS (2)
  - Cardiogenic shock [Fatal]
  - Myocardial infarction [Fatal]
